FAERS Safety Report 15712156 (Version 2)
Quarter: 2021Q1

REPORT INFORMATION
  Report Type: Spontaneous
  Country: FR (occurrence: FR)
  Receive Date: 20181212
  Receipt Date: 20210312
  Transmission Date: 20210419
  Serious: Yes (Death, Other)
  Sender: FDA-Public Use
  Company Number: FR-ASTRAZENECA-2018SF61515

PATIENT
  Sex: Male

DRUGS (4)
  1. OSIMERTINIB. [Suspect]
     Active Substance: OSIMERTINIB
     Indication: METASTASES TO LIVER
     Route: 048
  2. PEMETREXED. [Concomitant]
     Active Substance: PEMETREXED
  3. OSIMERTINIB. [Suspect]
     Active Substance: OSIMERTINIB
     Indication: METASTASES TO MENINGES
     Route: 048
  4. METHOTREXATE. [Concomitant]
     Active Substance: METHOTREXATE
     Indication: METASTASES TO MENINGES
     Route: 037

REACTIONS (6)
  - Off label use [Recovered/Resolved]
  - Death [Fatal]
  - Cardiac failure [Unknown]
  - Malignant neoplasm progression [Unknown]
  - Cardiotoxicity [Unknown]
  - Dyspnoea [Unknown]
